FAERS Safety Report 4667007-0 (Version None)
Quarter: 2005Q2

REPORT INFORMATION
  Report Type: 
  Country: None (occurrence: None)
  Receive Date: 20050520
  Receipt Date: 20040429
  Transmission Date: 20051028
  Serious: Yes (Other)
  Sender: FDA-Public Use
  Company Number: PHEH2004US04805

PATIENT
  Age: 78 Year
  Sex: Female

DRUGS (6)
  1. PREDNISONE TAB [Concomitant]
     Dosage: 20 MG, TID X 4 DAYS
     Dates: start: 19950509, end: 19960801
  2. ZOMETA [Suspect]
     Indication: MULTIPLE MYELOMA
     Dosage: UNK/UNK
     Dates: start: 20011101, end: 20020501
  3. DECADRON [Concomitant]
     Indication: MULTIPLE MYELOMA
     Dosage: 40 MG, QW
     Dates: start: 19970101
  4. THALIDOMIDE [Concomitant]
     Indication: MULTIPLE MYELOMA
     Dosage: 50 MG, Q 3RD DAY
     Dates: start: 20011001
  5. MELPHALAN [Concomitant]
     Dosage: 12 MG X 4 DAYS
     Dates: end: 19960801
  6. AREDIA [Suspect]
     Indication: MULTIPLE MYELOMA
     Dosage: 90 MG, QMO
     Dates: start: 19950517, end: 20030825

REACTIONS (6)
  - ACTINOMYCOSIS [None]
  - ASEPTIC NECROSIS BONE [None]
  - IMPAIRED HEALING [None]
  - OSTEOMYELITIS [None]
  - SEQUESTRECTOMY [None]
  - TOOTH EXTRACTION [None]
